FAERS Safety Report 23516911 (Version 1)
Quarter: 2024Q1

REPORT INFORMATION
  Report Type: 
  Country: None (occurrence: None)
  Receive Date: 20240213
  Receipt Date: 20240213
  Transmission Date: 20240410
  Serious: No
  Sender: FDA-Public Use
  Company Number: HR-ROCHE-2782812

PATIENT
  Age: 68 Year

DRUGS (12)
  1. ATEZOLIZUMAB [Suspect]
     Active Substance: ATEZOLIZUMAB
     Dosage: ON 18/JAN/2021, HE RECEIVED MOST RECENT DOSE OF ATEZOLIZUMAB PRIOR TO SERIOUS ADVERSE EVENT
     Dates: start: 20201207
  2. OXYGEN [Concomitant]
     Active Substance: OXYGEN
  3. CIPLAR [Concomitant]
  4. BRALTUS ZONDA [Concomitant]
  5. FUROSEMIDE [Concomitant]
     Active Substance: FUROSEMIDE
  6. CORDARONE [Concomitant]
     Active Substance: AMIODARONE HYDROCHLORIDE
  7. BISOPROLOL FUMARATE [Concomitant]
     Active Substance: BISOPROLOL FUMARATE
  8. IPRATROPIJEV BROMID/SALBUTAMOL CIPLA [Concomitant]
  9. GEMCITABINE [Concomitant]
     Active Substance: GEMCITABINE
  10. CISPLATIN [Concomitant]
     Active Substance: CISPLATIN
  11. GEMCITABINE [Concomitant]
     Active Substance: GEMCITABINE
  12. CISPLATIN [Concomitant]
     Active Substance: CISPLATIN

REACTIONS (3)
  - Pericarditis [None]
  - Pulmonary embolism [None]
  - Pneumonitis [None]

NARRATIVE: CASE EVENT DATE: 20210208
